FAERS Safety Report 7582873-7 (Version None)
Quarter: 2011Q2

REPORT INFORMATION
  Report Type: 
  Country: None (occurrence: None)
  Receive Date: 20110630
  Receipt Date: 20110628
  Transmission Date: 20111010
  Serious: Yes (Other)
  Sender: FDA-Public Use
  Company Number: JP-PFIZER INC-2011144519

PATIENT
  Age: 73 Year

DRUGS (2)
  1. LYRICA [Suspect]
     Dosage: 50MG (2 CAPSULES OF 25MG) DAILY
     Route: 048
  2. LYRICA [Suspect]
     Dosage: 75MG DAILY
     Route: 048

REACTIONS (4)
  - PYREXIA [None]
  - MALAISE [None]
  - CHROMATURIA [None]
  - DEHYDRATION [None]
